FAERS Safety Report 5987373-3 (Version None)
Quarter: 2008Q4

REPORT INFORMATION
  Report Type: 
  Country: None (occurrence: None)
  Receive Date: 20081209
  Receipt Date: 20081202
  Transmission Date: 20090506
  Serious: Yes (Death, Other)
  Sender: FDA-Public Use
  Company Number: PHHY2008DE30515

PATIENT
  Sex: Male
  Weight: 105 kg

DRUGS (13)
  1. EXJADE [Suspect]
     Indication: MYELODYSPLASTIC SYNDROME
     Dosage: 20 MG/KG, QD
     Route: 048
     Dates: start: 20061127, end: 20070205
  2. EXJADE [Suspect]
     Dosage: 20 MG/KG/DAY
     Route: 048
     Dates: start: 20070212, end: 20070313
  3. EXJADE [Suspect]
     Dosage: 20 MG/KG/DAY
     Route: 048
     Dates: start: 20070319, end: 20070320
  4. EXJADE [Suspect]
     Dosage: 10 MG/KG/DAY
     Route: 048
     Dates: start: 20070326, end: 20070420
  5. DESFERAL [Concomitant]
     Indication: HAEMOSIDEROSIS
     Dosage: 30 MG/KG
     Dates: start: 20060420
  6. BLOPRESS [Concomitant]
     Indication: HYPERTENSION
     Dosage: 16 MG/DAY
  7. DELIX [Concomitant]
     Indication: HYPERTENSION
     Dosage: 2.5 MG/DAY
     Dates: end: 20070131
  8. CLEXANE [Concomitant]
     Indication: ARRHYTHMIA
     Dosage: 0.8 MG/DAY
  9. CLEXANE [Concomitant]
     Indication: ATRIAL FIBRILLATION
  10. PANTOZOL [Concomitant]
     Dosage: 40 MG/DAY
  11. CYCLOSPORINE [Concomitant]
     Dosage: 150 MG/DAY
     Dates: start: 20070131
  12. MAGNESIUM SULFATE [Concomitant]
     Dosage: 1200 MG
  13. MAGNESIUM SULFATE [Concomitant]
     Dosage: 600 MG
     Dates: start: 20070131

REACTIONS (7)
  - BLOOD CREATININE INCREASED [None]
  - DYSURIA [None]
  - GLOMERULAR FILTRATION RATE DECREASED [None]
  - MYOCARDIAL INFARCTION [None]
  - PNEUMONIA [None]
  - PULMONARY CONGESTION [None]
  - PYREXIA [None]
